FAERS Safety Report 6528487-9 (Version None)
Quarter: 2009Q4

REPORT INFORMATION
  Report Type: 
  Country: None (occurrence: None)
  Receive Date: 20091229
  Receipt Date: 20091215
  Transmission Date: 20100525
  Serious: Yes (Other)
  Sender: FDA-Public Use
  Company Number: 2009-198220-NL

PATIENT
  Age: 40 Year
  Sex: Female

DRUGS (4)
  1. IMPLANON [Suspect]
     Indication: CONTRACEPTION
     Dosage: 1 DF; 1 DF
     Dates: start: 20050223
  2. IMPLANON [Suspect]
     Indication: CONTRACEPTION
     Dosage: 1 DF; 1 DF
     Dates: start: 20080313
  3. METHADONE [Concomitant]
  4. TRANXILIUM [Concomitant]

REACTIONS (3)
  - ABORTION SPONTANEOUS INCOMPLETE [None]
  - DRUG EXPOSURE DURING PREGNANCY [None]
  - PREGNANCY WITH IMPLANT CONTRACEPTIVE [None]
